FAERS Safety Report 9782620 (Version 2)
Quarter: 2014Q1

REPORT INFORMATION
  Report Type: Spontaneous
  Country: DE (occurrence: DE)
  Receive Date: 20131226
  Receipt Date: 20140217
  Transmission Date: 20141002
  Serious: Yes (Hospitalization)
  Sender: FDA-Public Use
  Company Number: US-UCBSA-106798

PATIENT
  Age: 11 Year
  Sex: Female
  Weight: 59 kg

DRUGS (1)
  1. EQUASYM RETARD [Suspect]
     Indication: ATTENTION DEFICIT/HYPERACTIVITY DISORDER
     Route: 048
     Dates: start: 201302, end: 201312

REACTIONS (1)
  - Menorrhagia [Recovered/Resolved]
